FAERS Safety Report 23911182 (Version 1)
Quarter: 2024Q2

REPORT INFORMATION
  Report Type: Spontaneous
  Country: IN (occurrence: IN)
  Receive Date: 20240528
  Receipt Date: 20240528
  Transmission Date: 20240716
  Serious: Yes (Other)
  Sender: FDA-Public Use
  Company Number: IN-PFIZER INC-PV202400068442

PATIENT
  Age: 66 Year
  Sex: Female

DRUGS (2)
  1. AROMASIN [Suspect]
     Active Substance: EXEMESTANE
     Indication: Ovarian cancer
     Dosage: 25 MG, OD
     Route: 048
     Dates: start: 201803
  2. AROMASIN [Suspect]
     Active Substance: EXEMESTANE
     Indication: Metastases to peritoneum

REACTIONS (4)
  - Carcinoembryonic antigen increased [Unknown]
  - Platelet count decreased [Unknown]
  - Carbohydrate antigen 125 increased [Unknown]
  - Off label use [Unknown]

NARRATIVE: CASE EVENT DATE: 20180301
